FAERS Safety Report 9482109 (Version 2)
Quarter: 2013Q4

REPORT INFORMATION
  Report Type: Report from Study
  Country: IN (occurrence: IN)
  Receive Date: 20130828
  Receipt Date: 20131112
  Transmission Date: 20140711
  Serious: Yes (Hospitalization)
  Sender: FDA-Public Use
  Company Number: PHHY2013IN092448

PATIENT
  Age: 28 Year
  Sex: Female

DRUGS (15)
  1. SIMULECT [Suspect]
     Indication: RENAL TRANSPLANT
     Dosage: 20 MG
     Dates: start: 20130703
  2. TACROLIMUS [Suspect]
     Indication: RENAL TRANSPLANT
     Dosage: 2 MG, BID
     Dates: start: 20130703
  3. TACROLIMUS [Suspect]
     Dosage: 1 MG, BID
     Dates: start: 20130703
  4. OMNACORTIL//PREDNISOLONE [Concomitant]
     Dosage: 20 MG, QD
  5. RANTAC [Concomitant]
     Dosage: 150 MG, QD
  6. SEPTRAN [Concomitant]
     Dosage: 150 MG, QD
  7. VALCYTE [Concomitant]
     Dosage: 450 MG, QD
  8. HOSIT [Concomitant]
     Dosage: 1 DF, QD
  9. COMBUTOL [Concomitant]
     Dosage: 600 MG, QD
  10. BENADON [Concomitant]
     Dosage: 0.5 DF DAILY
  11. OSTEOFOS [Concomitant]
     Dosage: 35 MG,ONCE A WEEK
  12. SHELCAL [Concomitant]
     Dosage: 500 MG, QD
  13. CREMALAX [Concomitant]
     Indication: CONSTIPATION
     Dosage: 2 DF, PRN
  14. LEVEMIR [Concomitant]
     Dosage: 30 UNITS ONCE DAILY
     Route: 058
  15. HUMALOG [Concomitant]
     Dosage: UNK

REACTIONS (4)
  - Pneumothorax [Recovering/Resolving]
  - Pyrexia [Unknown]
  - Kidney transplant rejection [Unknown]
  - Urine output decreased [Recovering/Resolving]
